FAERS Safety Report 13103884 (Version 3)
Quarter: 2017Q2

REPORT INFORMATION
  Report Type: Spontaneous
  Country: US (occurrence: US)
  Receive Date: 20170111
  Receipt Date: 20170403
  Transmission Date: 20170830
  Serious: Yes (Other)
  Sender: FDA-Public Use
  Company Number: US-JNJFOC-20170108110

PATIENT
  Sex: Female

DRUGS (1)
  1. LEVAQUIN [Suspect]
     Active Substance: LEVOFLOXACIN
     Indication: OSTEOMYELITIS
     Dosage: ON TABLET ONCE A DAY
     Route: 048
     Dates: start: 20100920, end: 201011

REACTIONS (7)
  - Skin disorder [Unknown]
  - Musculoskeletal disorder [Unknown]
  - Visual impairment [Unknown]
  - Hypoacusis [Unknown]
  - Cardiovascular disorder [Unknown]
  - Neuropathy peripheral [Unknown]
  - Mental disorder [Unknown]

NARRATIVE: CASE EVENT DATE: 2010
